FAERS Safety Report 7807001-1 (Version None)
Quarter: 2011Q4

REPORT INFORMATION
  Report Type: 
  Country: None (occurrence: None)
  Receive Date: 20111011
  Receipt Date: 20110926
  Transmission Date: 20120403
  Serious: Yes (Other)
  Sender: FDA-Public Use
  Company Number: DE-ROCHE-798113

PATIENT
  Sex: Female

DRUGS (5)
  1. PANTOPRAZOLE [Concomitant]
     Route: 042
     Dates: start: 20110802, end: 20110919
  2. ROCEPHIN [Suspect]
     Indication: SOFT TISSUE INFECTION
     Route: 042
     Dates: start: 20110805, end: 20110814
  3. HALOPERIDOL [Concomitant]
     Route: 042
  4. BUTYLSCOPOLAMINE [Concomitant]
     Route: 042
  5. METAMIZOL [Concomitant]
     Route: 042

REACTIONS (1)
  - DEVICE OCCLUSION [None]
